FAERS Safety Report 16685384 (Version 3)
Quarter: 2019Q4

REPORT INFORMATION
  Report Type: Report from Study
  Country: None (occurrence: RU)
  Receive Date: 20190809
  Receipt Date: 20191010
  Transmission Date: 20200122
  Serious: Yes (Death)
  Sender: FDA-Public Use
  Company Number: RU-ABBVIE-19K-251-2883023-00

PATIENT
  Age: 78 Year
  Sex: Female

DRUGS (7)
  1. VENCLEXTA [Suspect]
     Active Substance: VENETOCLAX
     Route: 048
     Dates: start: 20190520, end: 20190526
  2. ALLOPURINOL. [Concomitant]
     Active Substance: ALLOPURINOL
     Indication: BLOOD URIC ACID ABNORMAL
     Route: 048
     Dates: start: 20190620
  3. VENCLEXTA [Suspect]
     Active Substance: VENETOCLAX
     Route: 048
     Dates: start: 20190527, end: 20190616
  4. VENCLEXTA [Suspect]
     Active Substance: VENETOCLAX
     Route: 048
     Dates: start: 20190617, end: 20190620
  5. VENCLEXTA [Suspect]
     Active Substance: VENETOCLAX
     Indication: CHRONIC LYMPHOCYTIC LEUKAEMIA RECURRENT
     Route: 048
     Dates: start: 20190429, end: 20190505
  6. VENCLEXTA [Suspect]
     Active Substance: VENETOCLAX
     Route: 048
     Dates: start: 20190513, end: 20190519
  7. VENCLEXTA [Suspect]
     Active Substance: VENETOCLAX
     Route: 048
     Dates: start: 20190506, end: 20190512

REACTIONS (5)
  - Chromosomal deletion [Unknown]
  - Chronic lymphocytic leukaemia [Fatal]
  - Drug ineffective [Not Recovered/Not Resolved]
  - Prolymphocytic leukaemia [Fatal]
  - Pneumonia [Recovered/Resolved]

NARRATIVE: CASE EVENT DATE: 2019
